FAERS Safety Report 6017289-8 (Version None)
Quarter: 2008Q4

REPORT INFORMATION
  Report Type: 
  Country: None (occurrence: None)
  Receive Date: 20081223
  Receipt Date: 20081216
  Transmission Date: 20090506
  Serious: Yes (Hospitalization)
  Sender: FDA-Public Use
  Company Number: FR-BAYER-200833026GPV

PATIENT
  Age: 88 Year
  Sex: Female

DRUGS (6)
  1. ACARBOSE [Suspect]
     Indication: TYPE 1 DIABETES MELLITUS
     Route: 048
  2. HUMULIN N [Suspect]
     Indication: TYPE 1 DIABETES MELLITUS
     Route: 058
  3. PLAVIX [Concomitant]
     Indication: CEREBROVASCULAR ACCIDENT
     Route: 048
  4. COAPROVEL [Concomitant]
     Indication: HYPERTENSION
     Route: 048
  5. LERCAN [Concomitant]
     Indication: HYPERTENSION
     Route: 048
  6. TRINITRINE [Concomitant]
     Indication: DRUG USE FOR UNKNOWN INDICATION
     Route: 062

REACTIONS (2)
  - FALL [None]
  - HYPOGLYCAEMIA [None]
